FAERS Safety Report 8455914-2 (Version None)
Quarter: 2012Q2

REPORT INFORMATION
  Report Type: 
  Country: None (occurrence: None)
  Receive Date: 20120621
  Receipt Date: 20120612
  Transmission Date: 20120825
  Serious: Yes (Other)
  Sender: FDA-Public Use
  Company Number: US-ASTRAZENECA-2012SE39425

PATIENT
  Age: 62 Year
  Sex: Female
  Weight: 80.3 kg

DRUGS (2)
  1. SEROQUEL XR [Suspect]
     Indication: SLEEP DISORDER
     Route: 048
  2. SEROQUEL XR [Suspect]
     Indication: MAJOR DEPRESSION
     Route: 048

REACTIONS (5)
  - CEREBRAL HAEMORRHAGE [None]
  - INTENTIONAL DRUG MISUSE [None]
  - INSOMNIA [None]
  - CEREBROVASCULAR ACCIDENT [None]
  - MALAISE [None]
